FAERS Safety Report 9629761 (Version 2)
Quarter: 2013Q4

REPORT INFORMATION
  Report Type: Spontaneous
  Country: FR (occurrence: FR)
  Receive Date: 20131017
  Receipt Date: 20131106
  Transmission Date: 20140711
  Serious: Yes (Hospitalization)
  Sender: FDA-Public Use
  Company Number: FR-GLAXOSMITHKLINE-B0927977A

PATIENT
  Age: 31 Year
  Sex: Female
  Weight: 68 kg

DRUGS (4)
  1. LAMICTAL [Suspect]
     Indication: EPILEPSY
     Route: 048
  2. RIVOTRIL [Suspect]
     Indication: EPILEPSY
     Dosage: 2MG PER DAY
     Route: 048
  3. SPASFON [Suspect]
     Indication: UTERINE CONTRACTIONS DURING PREGNANCY
     Route: 048
     Dates: start: 201207
  4. SPECIAFOLDINE [Concomitant]
     Route: 048
     Dates: end: 2012

REACTIONS (5)
  - Convulsion [Recovered/Resolved]
  - Uterine contractions during pregnancy [Recovered/Resolved]
  - Craniocerebral injury [Recovered/Resolved]
  - Live birth [Unknown]
  - Exposure during pregnancy [Unknown]
